FAERS Safety Report 5875495-7 (Version None)
Quarter: 2008Q3

REPORT INFORMATION
  Report Type: 
  Country: None (occurrence: None)
  Receive Date: 20080905
  Receipt Date: 20080827
  Transmission Date: 20090109
  Serious: Yes (Other)
  Sender: FDA-Public Use
  Company Number: CHPA2008US14500

PATIENT
  Age: 26 Year
  Sex: Female
  Weight: 50.8 kg

DRUGS (1)
  1. EX-LAX REG STR CHOCOLATED LAX PCS SEN (NCH) (SENNA GLYCOSIDES (CA SALT [Suspect]
     Indication: CONSTIPATION
     Dosage: 45 MG, TID, ORAL
     Route: 048
     Dates: start: 20080826, end: 20080827

REACTIONS (2)
  - HAEMATOCHEZIA [None]
  - OVERDOSE [None]
